FAERS Safety Report 8049264-6 (Version None)
Quarter: 2012Q1

REPORT INFORMATION
  Report Type: 
  Country: None (occurrence: None)
  Receive Date: 20120117
  Receipt Date: 20120112
  Transmission Date: 20120608
  Serious: Yes (Life-Threatening, Hospitalization, Other)
  Sender: FDA-Public Use
  Company Number: US-ELI_LILLY_AND_COMPANY-US201201003939

PATIENT
  Age: 72 Year

DRUGS (12)
  1. FLEXERIL [Concomitant]
     Dosage: UNK, UNKNOWN
  2. SYMBYAX [Suspect]
     Dosage: 12MG/50MG
  3. NEXIUM [Concomitant]
     Dosage: UNK, UNKNOWN
  4. QUINAPRIL [Concomitant]
     Dosage: UNK, UNKNOWN
  5. METOPROLOL TARTRATE [Concomitant]
     Dosage: UNK, UNKNOWN
  6. CRESTOR [Concomitant]
     Dosage: UNK, UNKNOWN
  7. PERCOCET [Concomitant]
     Dosage: UNK, UNKNOWN
  8. DILAUDID [Concomitant]
     Dosage: UNK, UNKNOWN
  9. LIDODERM [Concomitant]
     Dosage: UNK, UNKNOWN
  10. HYDROCHLOROTHIAZIDE [Concomitant]
     Dosage: UNK, UNKNOWN
  11. METFORMIN HCL [Concomitant]
     Dosage: UNK, UNKNOWN
  12. FENTANYL [Concomitant]
     Dosage: UNK, UNKNOWN

REACTIONS (8)
  - RENAL FAILURE [None]
  - FALL [None]
  - BALANCE DISORDER [None]
  - ARTHRALGIA [None]
  - PNEUMONIA [None]
  - COLON CANCER [None]
  - COLON CANCER RECURRENT [None]
  - RESPIRATORY FAILURE [None]
